FAERS Safety Report 8848931 (Version 2)
Quarter: 2012Q4

REPORT INFORMATION
  Report Type: 
  Country: JP (occurrence: JP)
  Receive Date: 20121018
  Receipt Date: 20121106
  Transmission Date: 20130627
  Serious: Yes (Death, Other)
  Sender: FDA-Public Use
  Company Number: JP-AMGEN-JPNCT2012066127

PATIENT
  Age: 85 Year
  Sex: Male
  Weight: 48 kg

DRUGS (12)
  1. ROMIPLOSTIM - KHK [Suspect]
     Indication: IDIOPATHIC THROMBOCYTOPENIC PURPURA
     Dosage: 1 mug/kg, qd
     Route: 058
     Dates: start: 20120316, end: 20120316
  2. ROMIPLOSTIM - KHK [Suspect]
     Dosage: 2 mug/kg, qd
     Route: 058
     Dates: start: 20120323, end: 20120323
  3. ROMIPLOSTIM - KHK [Suspect]
     Dosage: 4 mug/kg, qd
     Route: 058
     Dates: start: 20120330, end: 20120330
  4. PREDNISOLONE [Concomitant]
     Indication: IDIOPATHIC THROMBOCYTOPENIC PURPURA
     Dosage: 30 mg, UNK
     Route: 048
     Dates: start: 20111114, end: 20120127
  5. METHYLPREDNISOLONE [Concomitant]
     Indication: IDIOPATHIC THROMBOCYTOPENIC PURPURA
     Dosage: 80 mg, UNK
     Route: 048
     Dates: start: 20120128, end: 20120401
  6. MEROPEN [Concomitant]
     Indication: INTESTINAL OBSTRUCTION
     Dosage: UNK
     Route: 065
  7. ZYVOX [Concomitant]
     Indication: INTESTINAL OBSTRUCTION
     Dosage: UNK
     Route: 065
  8. TAKEPRON [Concomitant]
     Indication: PROPHYLAXIS
     Dosage: UNK
     Route: 065
  9. VFEND [Concomitant]
     Indication: INTESTINAL OBSTRUCTION
     Dosage: UNK
     Route: 065
  10. FUROSEMIDE [Concomitant]
     Indication: OLIGURIA
     Dosage: UNK
     Route: 065
  11. DENOSINE [Concomitant]
     Indication: INTESTINAL OBSTRUCTION
     Dosage: UNK
     Route: 065
  12. WYSTAL [Concomitant]
     Indication: INTESTINAL OBSTRUCTION
     Dosage: UNK
     Route: 065

REACTIONS (3)
  - Gastrointestinal haemorrhage [Recovering/Resolving]
  - Staphylococcal infection [Fatal]
  - Anaemia [Not Recovered/Not Resolved]
